FAERS Safety Report 9387920 (Version 3)
Quarter: 2014Q2

REPORT INFORMATION
  Report Type: Spontaneous
  Country: JP (occurrence: JP)
  Receive Date: 20130708
  Receipt Date: 20140416
  Transmission Date: 20141212
  Serious: Yes (Hospitalization)
  Sender: FDA-Public Use
  Company Number: PHHY2013JP071655

PATIENT
  Sex: 0

DRUGS (3)
  1. TEGRETOL [Suspect]
     Indication: EPILEPSY
     Dosage: 400 MG, DAILY
     Route: 048
  2. RIVOTRIL [Concomitant]
     Indication: EPILEPSY
     Dosage: UNK UKN, UNK
     Route: 048
  3. DEPAKENE [Concomitant]
     Dosage: UNK UKN, UNK
     Route: 048

REACTIONS (4)
  - Tuberculous pleurisy [Unknown]
  - Pyrexia [Unknown]
  - Anti-cyclic citrullinated peptide antibody positive [Recovered/Resolved]
  - Pneumonia [Unknown]
